FAERS Safety Report 6661626-8 (Version None)
Quarter: 2010Q1

REPORT INFORMATION
  Report Type: 
  Country: None (occurrence: None)
  Receive Date: 20100331
  Receipt Date: 20090305
  Transmission Date: 20100710
  Serious: No
  Sender: FDA-Public Use
  Company Number: US-BRISTOL-MYERS SQUIBB COMPANY-14531388

PATIENT
  Age: 52 Year
  Sex: Female
  Weight: 109 kg

DRUGS (5)
  1. ERBITUX [Suspect]
     Indication: COLON CANCER
  2. ENALAPRIL MALEATE [Concomitant]
  3. VYTORIN [Concomitant]
  4. GLIPIZIDE [Concomitant]
  5. METFORMIN (GLUCOPHAGE) [Concomitant]

REACTIONS (1)
  - RASH [None]
